FAERS Safety Report 9293072 (Version 1)
Quarter: 2013Q2

REPORT INFORMATION
  Report Type: Spontaneous
  Country: US (occurrence: None)
  Receive Date: 20130515
  Receipt Date: 20130515
  Transmission Date: 20140414
  Serious: Yes (Hospitalization)
  Sender: FDA-Public Use
  Company Number: None

PATIENT
  Age: 54 Year
  Sex: Female
  Weight: 45.5 kg

DRUGS (1)
  1. CISPLATIN [Suspect]

REACTIONS (5)
  - Dyspnoea [None]
  - Cough [None]
  - Wheezing [None]
  - Pneumonia [None]
  - Anaemia [None]
